FAERS Safety Report 7737539-7 (Version None)
Quarter: 2011Q3

REPORT INFORMATION
  Report Type: 
  Country: None (occurrence: None)
  Receive Date: 20110817
  Receipt Date: 20110606
  Transmission Date: 20111222
  Serious: Yes (Hospitalization, Other)
  Sender: FDA-Public Use
  Company Number: 201110098

PATIENT
  Sex: Male

DRUGS (1)
  1. LIORESAL [Suspect]
     Indication: MUSCLE SPASTICITY
     Dosage: MCG, DAILY, INTRATHECAL
     Route: 037

REACTIONS (17)
  - BURNING SENSATION [None]
  - GAIT DISTURBANCE [None]
  - DRUG WITHDRAWAL SYNDROME [None]
  - NAUSEA [None]
  - DIZZINESS [None]
  - ABDOMINAL PAIN UPPER [None]
  - HYPOAESTHESIA [None]
  - SOMNOLENCE [None]
  - UNDERDOSE [None]
  - PRURITUS [None]
  - MUSCLE SPASTICITY [None]
  - BALANCE DISORDER [None]
  - PARAESTHESIA [None]
  - OVERDOSE [None]
  - HEADACHE [None]
  - HOSPITALISATION [None]
  - MUSCULAR WEAKNESS [None]
